FAERS Safety Report 17894480 (Version 5)
Quarter: 2021Q3

REPORT INFORMATION
  Report Type: Spontaneous
  Country: US (occurrence: US)
  Receive Date: 20200615
  Receipt Date: 20210920
  Transmission Date: 20211014
  Serious: Yes (Hospitalization)
  Sender: FDA-Public Use
  Company Number: US-GLAXOSMITHKLINE-US2020AMR099962

PATIENT
  Sex: Female

DRUGS (1)
  1. BENLYSTA [Suspect]
     Active Substance: BELIMUMAB
     Indication: SYSTEMIC LUPUS ERYTHEMATOSUS
     Dosage: 200 MG, WE

REACTIONS (6)
  - Arthralgia [Unknown]
  - Vomiting [Unknown]
  - Fear [Unknown]
  - Musculoskeletal pain [Unknown]
  - Back pain [Unknown]
  - Stress [Unknown]
